FAERS Safety Report 5485491-X (Version None)
Quarter: 2007Q4

REPORT INFORMATION
  Report Type: 
  Country: None (occurrence: None)
  Receive Date: 20071002
  Receipt Date: 20060908
  Transmission Date: 20080405
  Serious: No
  Sender: FDA-Public Use
  Company Number: 2006110199

PATIENT
  Age: 45 Year
  Sex: Female
  Weight: 56.6996 kg

DRUGS (2)
  1. DEPO-TESTOSTERONE [Suspect]
     Indication: ASTHENIA
     Dosage: (1 IN 1 M)
  2. DEPO-TESTOSTERONE [Suspect]
     Indication: LIBIDO DECREASED
     Dosage: (1 IN 1 M)

REACTIONS (2)
  - DRUG INEFFECTIVE [None]
  - HAIR GROWTH ABNORMAL [None]
